FAERS Safety Report 8667487 (Version 4)
Quarter: 2013Q3

REPORT INFORMATION
  Report Type: Report from Study
  Country: JP (occurrence: JP)
  Receive Date: 20120717
  Receipt Date: 20130711
  Transmission Date: 20140515
  Serious: Yes (Other)
  Sender: FDA-Public Use
  Company Number: JP-MSD-1207JPN000542

PATIENT
  Age: 59 Year
  Sex: Male
  Weight: 60.5 kg

DRUGS (12)
  1. VANIPREVIR [Suspect]
     Indication: CHRONIC HEPATITIS C
     Dosage: 300 MG, BID
     Route: 048
     Dates: start: 20120120, end: 20120303
  2. VANIPREVIR [Suspect]
     Dosage: UNK
     Route: 048
     Dates: start: 20120305, end: 20120412
  3. VANIPREVIR [Suspect]
     Dosage: UNK
     Route: 048
     Dates: start: 20120419, end: 20120428
  4. VANIPREVIR [Suspect]
     Dosage: UNK
     Dates: start: 20120430, end: 20120517
  5. VANIPREVIR [Suspect]
     Dosage: UNK
     Route: 048
     Dates: start: 20120601, end: 20120630
  6. PEGINTERFERON ALFA-2B [Suspect]
     Indication: CHRONIC HEPATITIS C
     Dosage: 100 MICROGRAM, QW
     Route: 058
     Dates: start: 20120120, end: 20120511
  7. PEGINTERFERON ALFA-2B [Suspect]
     Dosage: UNK UNK, QW
     Route: 058
     Dates: start: 20120325, end: 20120628
  8. RIBAVIRIN [Suspect]
     Indication: CHRONIC HEPATITIS C
     Dosage: 800 MG, QD
     Route: 048
     Dates: start: 20120120, end: 20120303
  9. RIBAVIRIN [Suspect]
     Dosage: UNK UNK, QD
     Route: 048
     Dates: start: 20120305, end: 20120412
  10. RIBAVIRIN [Suspect]
     Dosage: UNK UNK, QD
     Route: 048
     Dates: start: 20120319, end: 20120428
  11. RIBAVIRIN [Suspect]
     Dosage: UNK UNK, QD
     Route: 048
     Dates: start: 20120430, end: 20120517
  12. RIBAVIRIN [Suspect]
     Dosage: UNK UNK, QD
     Route: 048
     Dates: start: 20120521, end: 20120630

REACTIONS (2)
  - Dehydration [Recovered/Resolved]
  - Atrial fibrillation [Recovered/Resolved]
